FAERS Safety Report 6979243-9 (Version None)
Quarter: 2010Q3

REPORT INFORMATION
  Report Type: 
  Country: None (occurrence: None)
  Receive Date: 20100913
  Receipt Date: 20100901
  Transmission Date: 20110219
  Serious: Yes (Other)
  Sender: FDA-Public Use
  Company Number: US-PFIZER INC-2010111224

PATIENT
  Sex: Female
  Weight: 50.75 kg

DRUGS (2)
  1. LYRICA [Suspect]
     Indication: FIBROMYALGIA
     Dosage: 150 MG, 2X/DAY
     Route: 048
     Dates: start: 20091101
  2. HYDROCODONE [Concomitant]
     Indication: FIBROMYALGIA
     Dosage: UNK

REACTIONS (14)
  - AGITATION [None]
  - ASTHENIA [None]
  - DRY EYE [None]
  - DRY MOUTH [None]
  - DYSPNOEA [None]
  - FEELING ABNORMAL [None]
  - HYPERTENSION [None]
  - MALAISE [None]
  - MYALGIA [None]
  - ORAL DISCOMFORT [None]
  - ORAL PAIN [None]
  - PANIC ATTACK [None]
  - PYREXIA [None]
  - VISION BLURRED [None]
